FAERS Safety Report 9270253 (Version 1)
Quarter: 2013Q2

REPORT INFORMATION
  Report Type: Spontaneous
  Country: US (occurrence: US)
  Receive Date: 20130503
  Receipt Date: 20130503
  Transmission Date: 20140414
  Serious: Yes (Hospitalization)
  Sender: FDA-Public Use
  Company Number: US-ROCHE-1219713

PATIENT
  Age: 76 Year
  Sex: Female

DRUGS (5)
  1. PERJETA [Suspect]
     Indication: BREAST CANCER METASTATIC
     Route: 065
     Dates: start: 20130307
  2. PERJETA [Suspect]
     Dosage: THERAPY RESTARTED AFTER 6 WEEKS
     Route: 065
  3. HERCEPTIN [Suspect]
     Indication: BREAST CANCER METASTATIC
     Route: 065
     Dates: start: 20130307
  4. HERCEPTIN [Suspect]
     Dosage: THERAPY RESTARTED AFTER 6 WEEKS
     Route: 065
  5. DOCETAXEL [Suspect]
     Indication: BREAST CANCER METASTATIC
     Route: 065
     Dates: start: 20130307

REACTIONS (5)
  - Haematochezia [Unknown]
  - Anaemia [Unknown]
  - Hypotension [Unknown]
  - Syncope [Unknown]
  - Gastrointestinal haemorrhage [Unknown]
